FAERS Safety Report 4656815-8 (Version None)
Quarter: 2005Q2

REPORT INFORMATION
  Report Type: 
  Country: None (occurrence: None)
  Receive Date: 20050505
  Receipt Date: 20050429
  Transmission Date: 20051028
  Serious: Yes (Death)
  Sender: FDA-Public Use
  Company Number: 2005CG00855

PATIENT
  Age: 58 Year
  Sex: Female
  Weight: 70 kg

DRUGS (2)
  1. DIPRIVAN [Suspect]
     Indication: GENERAL ANAESTHESIA
     Dosage: 5 MG ONCE IV
     Route: 042
     Dates: start: 20050119, end: 20050119
  2. TRACRIUM [Suspect]
     Indication: GENERAL ANAESTHESIA
     Dosage: 0.5 MG ONCE IV
     Route: 042
     Dates: start: 20050119, end: 20050119

REACTIONS (3)
  - ANAPHYLACTIC SHOCK [None]
  - DRUG INEFFECTIVE [None]
  - MYOCARDIAL INFARCTION [None]
